FAERS Safety Report 9036431 (Version 1)
Quarter: 2013Q1

REPORT INFORMATION
  Report Type: Spontaneous
  Country: US (occurrence: None)
  Receive Date: 20130123
  Receipt Date: 20130123
  Transmission Date: 20140127
  Serious: Yes (Life-Threatening, Disabling, Other)
  Sender: FDA-Public Use
  Company Number: None

PATIENT
  Age: 52 Year
  Sex: Male
  Weight: 111.13 kg

DRUGS (3)
  1. CIPROFLOXACIN, 500 MG, WEST-WARD [Suspect]
     Indication: ESCHERICHIA BACTERAEMIA
     Route: 048
     Dates: start: 20000401, end: 20050329
  2. CIPROFLOXACIN, 500 MG, WEST-WARD [Suspect]
     Indication: GASTRIC DISORDER
     Route: 048
     Dates: start: 20000401, end: 20050329
  3. CIPROFLOXACIN, 500 MG, WEST-WARD [Suspect]
     Indication: DIARRHOEA
     Route: 048
     Dates: start: 20000401, end: 20050329

REACTIONS (5)
  - Hypoaesthesia [None]
  - Paraesthesia [None]
  - Neuropathy peripheral [None]
  - Paraesthesia [None]
  - Intervertebral disc protrusion [None]
